FAERS Safety Report 6739866-9 (Version None)
Quarter: 2010Q2

REPORT INFORMATION
  Report Type: 
  Country: None (occurrence: None)
  Receive Date: 20100525
  Receipt Date: 20100520
  Transmission Date: 20101027
  Serious: Yes (Death, Hospitalization)
  Sender: FDA-Public Use
  Company Number: PHHY2010US31943

PATIENT
  Sex: Male
  Weight: 108 kg

DRUGS (6)
  1. EXJADE [Suspect]
     Indication: MYELODYSPLASTIC SYNDROME
     Dosage: 2500 MG, QD
     Route: 048
  2. EXJADE [Suspect]
     Indication: LYMPHATIC DISORDER
  3. EXJADE [Suspect]
     Indication: BLOOD DISORDER
  4. DACOGEN [Concomitant]
     Dosage: 1-5 DROPS
     Route: 042
     Dates: start: 20100125, end: 20100217
  5. PROCRIT [Concomitant]
     Dosage: 5 G EVERY 28 DAYS
     Dates: start: 20100111, end: 20100217
  6. ANTIARRHYTHMICS [Concomitant]

REACTIONS (3)
  - MALIGNANT NEOPLASM PROGRESSION [None]
  - PNEUMONIA [None]
  - SEPSIS [None]
